FAERS Safety Report 10665471 (Version 3)
Quarter: 2015Q2

REPORT INFORMATION
  Report Type: Report from Study
  Country: CA (occurrence: CA)
  Receive Date: 20141219
  Receipt Date: 20150603
  Transmission Date: 20150821
  Serious: Yes (Other)
  Sender: FDA-Public Use
  Company Number: PHHY2014CA166136

PATIENT
  Age: 21 Year
  Sex: Female

DRUGS (3)
  1. CICLOSPORIN SANDOZ [Suspect]
     Active Substance: CYCLOSPORINE
     Indication: CHRONIC SPONTANEOUS URTICARIA
     Dosage: 100 MG, BID
     Route: 048
  2. REACTINE                                /CAN/ [Concomitant]
     Indication: PRODUCT USED FOR UNKNOWN INDICATION
     Route: 065
  3. XOLAIR [Suspect]
     Active Substance: OMALIZUMAB
     Indication: CHRONIC SPONTANEOUS URTICARIA
     Dosage: 300 MG, Q 4 WEEKS
     Route: 058
     Dates: start: 20150312

REACTIONS (3)
  - Urticaria [Unknown]
  - Anaphylactic shock [Unknown]
  - Acne [Unknown]

NARRATIVE: CASE EVENT DATE: 2014
